FAERS Safety Report 9527441 (Version 3)
Quarter: 2013Q4

REPORT INFORMATION
  Report Type: Spontaneous
  Country: JP (occurrence: JP)
  Receive Date: 20130917
  Receipt Date: 20131230
  Transmission Date: 20140711
  Serious: Yes (Other)
  Sender: FDA-Public Use
  Company Number: JP-009507513-1309JPN006326

PATIENT
  Age: 81 Year
  Sex: Male

DRUGS (10)
  1. ESLAX [Suspect]
     Indication: NEUROMUSCULAR BLOCKING THERAPY
     Dosage: 40 MG, UNK
     Route: 042
  2. ESLAX [Suspect]
     Dosage: 7 MICROGRAM PER KILOGRAM/MIN
     Route: 041
  3. PROPOFOL [Suspect]
     Indication: INDUCTION OF ANAESTHESIA
     Dosage: 50 MG, UNK
     Route: 042
  4. ULTIVA [Suspect]
     Indication: INDUCTION OF ANAESTHESIA
     Dosage: 0.5 MICROGRAM PER KILOGRAM/MIN
  5. ULTIVA [Suspect]
     Indication: MAINTENANCE OF ANAESTHESIA
     Dosage: 0.25 MICROGRAM PER KILOGRAM/MIN
     Route: 042
  6. SEVOFLURANE [Suspect]
     Indication: MAINTENANCE OF ANAESTHESIA
     Dosage: 1-1.5%;   DAILY DOSE UNKNOWN
     Route: 055
  7. LIDOCAINE [Suspect]
     Dosage: 5 ML, UNK
     Route: 008
  8. FENTANYL CITRATE [Suspect]
     Dosage: 100 MICROGRAM, UNK
     Route: 008
  9. POPSCAINE [Suspect]
     Dosage: 4 ML/ HOUR
     Route: 008
  10. SEREVENT [Concomitant]
     Indication: EMPHYSEMA
     Dosage: DAILY DOSE UNKNOWN
     Route: 055

REACTIONS (2)
  - Cardiac arrest [Recovered/Resolved]
  - Sinus bradycardia [Recovered/Resolved]
